FAERS Safety Report 5030663-1 (Version None)
Quarter: 2006Q2

REPORT INFORMATION
  Report Type: 
  Country: None (occurrence: None)
  Receive Date: 20060615
  Receipt Date: 20060609
  Transmission Date: 20061013
  Serious: Yes (Hospitalization)
  Sender: FDA-Public Use
  Company Number: NLWYE717212JUN06

PATIENT
  Age: 74 Year
  Sex: Female

DRUGS (5)
  1. EFFEXOR XR [Suspect]
     Indication: DEPRESSION
     Dosage: 75 MG 2X PER 1 DAY
     Dates: start: 20050101
  2. MORPHINE [Suspect]
     Dates: start: 20060601, end: 20060608
  3. OXAZEPAM [Concomitant]
  4. SINEMET [Concomitant]
  5. NITRAZEPAM [Concomitant]

REACTIONS (5)
  - CEREBROVASCULAR ACCIDENT [None]
  - CONFUSIONAL STATE [None]
  - HALLUCINATION [None]
  - HIP FRACTURE [None]
  - INSOMNIA [None]
